FAERS Safety Report 8051959-5 (Version None)
Quarter: 2012Q1

REPORT INFORMATION
  Report Type: 
  Country: None (occurrence: None)
  Receive Date: 20120118
  Receipt Date: 20120113
  Transmission Date: 20120608
  Serious: Yes (Other)
  Sender: FDA-Public Use
  Company Number: US-JNJFOC-20110802608

PATIENT
  Sex: Male
  Weight: 74.84 kg

DRUGS (2)
  1. ALPRAZOLAM [Concomitant]
     Indication: INSOMNIA
     Route: 048
     Dates: start: 20090101
  2. DURAGESIC-100 [Suspect]
     Indication: BACK PAIN
     Dosage: 100 PLUS 50 UG/HR
     Route: 062
     Dates: start: 20010101, end: 20110701

REACTIONS (3)
  - PLEURITIC PAIN [None]
  - BACK PAIN [None]
  - INSOMNIA [None]
